FAERS Safety Report 15437220 (Version 2)
Quarter: 2019Q2

REPORT INFORMATION
  Report Type: Report from Study
  Country: US (occurrence: US)
  Receive Date: 20180927
  Receipt Date: 20190401
  Transmission Date: 20190711
  Serious: No
  Sender: FDA-Public Use
  Company Number: US-CLOVIS ONCOLOGY-CLO-2018-001331

PATIENT
  Sex: Female

DRUGS (2)
  1. RUBRACA [Suspect]
     Active Substance: RUCAPARIB CAMSYLATE
     Dosage: 300 MG, BID
     Route: 048
     Dates: start: 20180803, end: 201812
  2. RUBRACA [Suspect]
     Active Substance: RUCAPARIB CAMSYLATE
     Indication: OVARIAN CANCER
     Dosage: 300 MG, BID
     Route: 048
     Dates: start: 20180802, end: 20180919

REACTIONS (11)
  - Pain [Unknown]
  - Nausea [Unknown]
  - Erythema [Unknown]
  - Back pain [Unknown]
  - Decreased appetite [Unknown]
  - Pruritus [Unknown]
  - Diarrhoea [Unknown]
  - Disturbance in attention [Unknown]
  - Inflammation [Unknown]
  - Adverse event [Unknown]
  - Insomnia [Unknown]

NARRATIVE: CASE EVENT DATE: 2018
